FAERS Safety Report 15190444 (Version 2)
Quarter: 2018Q3

REPORT INFORMATION
  Report Type: Spontaneous
  Country: US (occurrence: US)
  Receive Date: 20180724
  Receipt Date: 20180920
  Transmission Date: 20181010
  Serious: Yes (Other)
  Sender: FDA-Public Use
  Company Number: US-PFIZER INC-2018295630

PATIENT
  Age: 49 Year
  Sex: Female
  Weight: 102.97 kg

DRUGS (1)
  1. LYRICA [Suspect]
     Active Substance: PREGABALIN
     Indication: FIBROMYALGIA
     Dosage: 75 MG, 2X/DAY
     Route: 048
     Dates: start: 201710, end: 201712

REACTIONS (10)
  - Anxiety [Recovered/Resolved]
  - Drug effect decreased [Recovered/Resolved]
  - Mental impairment [Recovered/Resolved]
  - Repetitive speech [Recovered/Resolved]
  - Impaired driving ability [Recovered/Resolved]
  - Aphasia [Recovered/Resolved]
  - Depression [Recovered/Resolved]
  - Thinking abnormal [Recovered/Resolved]
  - Feeling abnormal [Recovered/Resolved]
  - Confusional state [Recovered/Resolved]

NARRATIVE: CASE EVENT DATE: 201710
